FAERS Safety Report 10183426 (Version 2)
Quarter: 2014Q3

REPORT INFORMATION
  Report Type: Report from Study
  Country: NZ (occurrence: NZ)
  Receive Date: 20140520
  Receipt Date: 20140707
  Transmission Date: 20150326
  Serious: Yes (Life-Threatening)
  Sender: FDA-Public Use
  Company Number: NZ-CELGENEUS-118-10004-14052490

PATIENT
  Sex: Male
  Weight: 97 kg

DRUGS (5)
  1. CC-10004 [Suspect]
     Active Substance: APREMILAST
     Route: 048
     Dates: start: 20140506
  2. CC-10004 [Suspect]
     Active Substance: APREMILAST
     Indication: PSORIATIC ARTHROPATHY
     Route: 048
     Dates: end: 20140502
  3. NAPROSYN [Concomitant]
     Active Substance: NAPROXEN
     Indication: PSORIATIC ARTHROPATHY
     Dosage: 1000 MILLIGRAM
     Route: 048
     Dates: start: 201110
  4. LIPEX [Concomitant]
     Active Substance: SIMVASTATIN
     Indication: BLOOD CHOLESTEROL INCREASED
     Dosage: 20 MILLIGRAM
     Route: 048
     Dates: start: 2006
  5. METFORMIN [Concomitant]
     Active Substance: METFORMIN HYDROCHLORIDE
     Indication: DIABETES MELLITUS
     Dosage: 850 MILLIGRAM
     Route: 048
     Dates: start: 2006

REACTIONS (1)
  - Anaphylactic reaction [Recovered/Resolved]
